FAERS Safety Report 24661932 (Version 3)
Quarter: 2024Q4

REPORT INFORMATION
  Report Type: Spontaneous
  Country: JP (occurrence: JP)
  Receive Date: 20241125
  Receipt Date: 20241223
  Transmission Date: 20250115
  Serious: Yes (Disabling, Other)
  Sender: MERCK
  Company Number: JP-MSD-M2024-48378

PATIENT
  Age: 8 Decade
  Sex: Male

DRUGS (2)
  1. KEYTRUDA [Suspect]
     Active Substance: PEMBROLIZUMAB
     Indication: Bladder transitional cell carcinoma stage IV
     Dosage: 200 MILLIGRAM, Q3W
     Route: 041
     Dates: start: 20241112, end: 20241112
  2. PADCEV [Concomitant]
     Active Substance: ENFORTUMAB VEDOTIN\ENFORTUMAB VEDOTIN-EJFV
     Indication: Bladder transitional cell carcinoma stage IV
     Dosage: 1.25 MILLIGRAM/SQ. METER
     Route: 041
     Dates: start: 20241112, end: 20241112

REACTIONS (1)
  - Cerebral infarction [Unknown]

NARRATIVE: CASE EVENT DATE: 20241118
